FAERS Safety Report 7131553-0 (Version None)
Quarter: 2010Q4

REPORT INFORMATION
  Report Type: 
  Country: None (occurrence: None)
  Receive Date: 20101201
  Receipt Date: 20101122
  Transmission Date: 20110411
  Serious: Yes (Hospitalization)
  Sender: FDA-Public Use
  Company Number: JP-ABBOTT-10P-087-0681495-00

PATIENT
  Sex: Female
  Weight: 50.1 kg

DRUGS (7)
  1. HUMIRA [Suspect]
     Indication: PRODUCT USED FOR UNKNOWN INDICATION
     Route: 058
     Dates: start: 20100910, end: 20100924
  2. MECOBALAMIN [Concomitant]
     Indication: NEUROPATHY PERIPHERAL
     Route: 048
     Dates: start: 20100910, end: 20101008
  3. FERROUS SULFATE HYDRATE [Concomitant]
     Indication: ANAEMIA
     Route: 048
     Dates: start: 20100709
  4. ISONIAZID [Concomitant]
     Indication: ANTIBIOTIC PROPHYLAXIS
     Route: 048
  5. FELBINAC [Concomitant]
     Indication: RHEUMATOID ARTHRITIS
     Dosage: 1 TAPE/D
     Route: 062
     Dates: start: 20091017, end: 20100910
  6. FLURBIPROFEN [Concomitant]
     Indication: RHEUMATOID ARTHRITIS
     Dosage: 1 TAPE/D
     Route: 062
  7. KETOPROFEN [Concomitant]
     Indication: RHEUMATOID ARTHRITIS
     Dosage: 1 TAPE/D
     Route: 062
     Dates: start: 20100827, end: 20101013

REACTIONS (10)
  - COUGH [None]
  - DIARRHOEA [None]
  - DIZZINESS [None]
  - FEBRILE NEUTROPENIA [None]
  - HEADACHE [None]
  - MALAISE [None]
  - PHARYNGEAL ERYTHEMA [None]
  - PYREXIA [None]
  - RASH ERYTHEMATOUS [None]
  - THROMBOCYTOPENIA [None]
